FAERS Safety Report 9548273 (Version 3)
Quarter: 2014Q1

REPORT INFORMATION
  Report Type: Report from Study
  Country: BR (occurrence: BR)
  Receive Date: 20130924
  Receipt Date: 20140107
  Transmission Date: 20141002
  Serious: Yes (Other)
  Sender: FDA-Public Use
  Company Number: BR-ROCHE-1197355

PATIENT
  Sex: Female
  Weight: 68 kg

DRUGS (2)
  1. MABTHERA [Suspect]
     Indication: RHEUMATOID ARTHRITIS
     Route: 042
  2. CAPTOPRIL [Concomitant]

REACTIONS (5)
  - Tendon rupture [Unknown]
  - Influenza [Recovered/Resolved]
  - Joint destruction [Not Recovered/Not Resolved]
  - Visual impairment [Recovering/Resolving]
  - Sciatic nerve neuropathy [Unknown]
